FAERS Safety Report 6467811-2 (Version None)
Quarter: 2009Q4

REPORT INFORMATION
  Report Type: 
  Country: None (occurrence: None)
  Receive Date: 20091202
  Receipt Date: 20091125
  Transmission Date: 20100525
  Serious: Yes (Hospitalization)
  Sender: FDA-Public Use
  Company Number: FR-GENENTECH-281622

PATIENT

DRUGS (6)
  1. BEVACIZUMAB [Suspect]
     Indication: COLORECTAL CANCER
     Dosage: 300 MG, UNK
     Route: 042
     Dates: start: 20080130
  2. IRINOTECAN HCL [Suspect]
     Indication: COLORECTAL CANCER
     Dosage: 440 MG, UNK
     Route: 042
     Dates: start: 20080130
  3. FLUOROURACIL [Suspect]
     Indication: COLORECTAL CANCER
     Dosage: 4050 MG, UNK
     Route: 041
     Dates: start: 20080502, end: 20080504
  4. ELVORINE [Suspect]
     Indication: COLORECTAL CANCER
     Dosage: 350 MG, UNK
     Dates: start: 20080130
  5. PREDNISOLONE [Concomitant]
     Indication: NAUSEA
     Dosage: 40 MG, UNK
     Route: 048
     Dates: start: 20080503, end: 20080508
  6. METOCLOPRAMIDE [Concomitant]
     Indication: NAUSEA
     Dosage: 6 TABLET, QD
     Route: 048
     Dates: start: 20080503, end: 20080508

REACTIONS (1)
  - PYREXIA [None]
